FAERS Safety Report 6917262-9 (Version None)
Quarter: 2010Q3

REPORT INFORMATION
  Report Type: 
  Country: None (occurrence: None)
  Receive Date: 20100810
  Receipt Date: 20100803
  Transmission Date: 20110219
  Serious: Yes (Hospitalization)
  Sender: FDA-Public Use
  Company Number: JP-MERCK-0812USA02225

PATIENT
  Age: 54 Year
  Sex: Male

DRUGS (11)
  1. PEPCID RPD [Suspect]
     Route: 048
     Dates: start: 20081001, end: 20081128
  2. LIPITOR [Suspect]
     Indication: HYPERLIPIDAEMIA
     Route: 048
     Dates: start: 20081001, end: 20081128
  3. MICARDIS [Suspect]
     Indication: HYPERTENSION
     Route: 048
     Dates: end: 20081128
  4. ASPIRIN [Suspect]
     Route: 048
     Dates: end: 20081128
  5. LASIX [Suspect]
     Route: 048
     Dates: end: 20081128
  6. ALDACTONE [Suspect]
     Route: 048
     Dates: end: 20081128
  7. HERBESSER [Suspect]
     Route: 048
     Dates: end: 20081128
  8. ITOROL [Suspect]
     Route: 048
     Dates: end: 20081128
  9. MAGMITT [Suspect]
     Route: 048
     Dates: end: 20081128
  10. DEPAS [Concomitant]
     Route: 048
     Dates: start: 20081009
  11. WARFARIN POTASSIUM [Concomitant]
     Route: 048
     Dates: start: 20081009

REACTIONS (1)
  - LIVER DISORDER [None]
